FAERS Safety Report 5486844-6 (Version None)
Quarter: 2007Q4

REPORT INFORMATION
  Report Type: 
  Country: None (occurrence: None)
  Receive Date: 20071012
  Receipt Date: 20071012
  Transmission Date: 20080405
  Serious: Yes (Hospitalization)
  Sender: FDA-Public Use
  Company Number: None

PATIENT
  Sex: Female
  Weight: 95 kg

DRUGS (14)
  1. SUNITINIB [Suspect]
     Indication: RENAL CANCER METASTATIC
     Dosage: 50 MG DAILY X 28 DAYS PO
     Route: 048
     Dates: start: 20070723, end: 20070930
  2. METHADONE HCL [Concomitant]
  3. LEXAPRO [Concomitant]
  4. ATIVAN [Concomitant]
  5. REGLAN [Concomitant]
  6. ZOFRAN [Concomitant]
  7. AMBIEN [Concomitant]
  8. MILK OF MAGNESIA [Concomitant]
  9. COLACE [Concomitant]
  10. TOPROL-XL [Concomitant]
  11. MAVIK [Concomitant]
  12. VYTORIN [Concomitant]
  13. ASPIRIN [Concomitant]
  14. CALCIUM [Concomitant]

REACTIONS (3)
  - DYSPNOEA [None]
  - LYMPHADENOPATHY [None]
  - PLEURAL EFFUSION [None]
